FAERS Safety Report 13260847 (Version 1)
Quarter: 2017Q1

REPORT INFORMATION
  Report Type: Spontaneous
  Country: DE (occurrence: DE)
  Receive Date: 20170222
  Receipt Date: 20170222
  Transmission Date: 20170428
  Serious: Yes (Hospitalization)
  Sender: FDA-Public Use
  Company Number: DE-STALLERGENES SAS-1063446

PATIENT
  Sex: Male

DRUGS (1)
  1. ORALAIR [Suspect]
     Active Substance: ANTHOXANTHUM ODORATUM POLLEN\DACTYLIS GLOMERATA POLLEN\LOLIUM PERENNE POLLEN\PHLEUM PRATENSE POLLEN\POA PRATENSIS POLLEN
     Indication: PRODUCT USED FOR UNKNOWN INDICATION
     Route: 060
     Dates: start: 201611

REACTIONS (7)
  - Asthenia [Unknown]
  - Fall [Unknown]
  - Oropharyngeal pain [Unknown]
  - Panic reaction [Unknown]
  - Dyspnoea [Unknown]
  - Pyrexia [Unknown]
  - Hyperventilation [Unknown]

NARRATIVE: CASE EVENT DATE: 20161220
